FAERS Safety Report 5698128-1 (Version None)
Quarter: 2008Q2

REPORT INFORMATION
  Report Type: 
  Country: None (occurrence: None)
  Receive Date: 20080408
  Receipt Date: 20080401
  Transmission Date: 20081010
  Serious: Yes (Hospitalization)
  Sender: FDA-Public Use
  Company Number: FR-WYE-G01328908

PATIENT
  Sex: Male

DRUGS (14)
  1. EFFEXOR [Suspect]
     Indication: BIPOLAR I DISORDER
     Route: 048
     Dates: start: 20050101, end: 20071101
  2. EFFEXOR [Suspect]
     Dosage: 150 MG TOTAL DAILY
     Route: 048
     Dates: start: 20071101, end: 20080206
  3. RIVOTRIL [Suspect]
     Indication: MAJOR DEPRESSION
     Dosage: 10 DROPS TOTAL DAILY
     Route: 048
     Dates: start: 20071101, end: 20080128
  4. DIAMICRON [Concomitant]
     Indication: TYPE 2 DIABETES MELLITUS
     Dosage: 30 MG STRENGTH; FREQUENCY UNSPECIFIED
     Route: 048
  5. SURMONTIL [Suspect]
     Indication: BIPOLAR I DISORDER
     Route: 048
     Dates: start: 20050101, end: 20080206
  6. TERCIAN [Suspect]
     Indication: BIPOLAR I DISORDER
     Dosage: 10 TO 20 DROPS 1 TIME DAILY
     Route: 048
     Dates: start: 20050101, end: 20080206
  7. TAREG [Concomitant]
     Indication: HYPERTENSION
     Dosage: 80 MG STRENGTH; FREQUENCY UNSPECIFIED
     Route: 048
  8. RISPERDAL [Suspect]
     Indication: MAJOR DEPRESSION
     Route: 048
     Dates: start: 20071101, end: 20071204
  9. RISPERDAL [Suspect]
     Dosage: 4 MG TOTAL DAILY
     Route: 048
     Dates: start: 20071205, end: 20071218
  10. RISPERDAL [Suspect]
     Dosage: 6 MG TOTAL DAILY
     Route: 048
     Dates: start: 20071219, end: 20080117
  11. RISPERDAL [Suspect]
     Dosage: 4 MG TOTAL DAILY
     Route: 048
     Dates: start: 20080118, end: 20080127
  12. RISPERDAL [Suspect]
     Route: 048
     Dates: start: 20080128, end: 20080206
  13. VALIUM [Suspect]
     Indication: MAJOR DEPRESSION
     Dosage: 7.5 MG TOTAL DAILY
     Route: 048
     Dates: start: 20071101, end: 20080128
  14. VALIUM [Suspect]
     Dosage: 5 MG TOTAL DAILY
     Route: 048
     Dates: start: 20080211

REACTIONS (7)
  - ACCIDENTAL OVERDOSE [None]
  - CONVULSION [None]
  - DISORIENTATION [None]
  - DRUG INEFFECTIVE [None]
  - FATIGUE [None]
  - IMPAIRED SELF-CARE [None]
  - INCORRECT DOSE ADMINISTERED [None]
